FAERS Safety Report 23406497 (Version 1)
Quarter: 2024Q1

REPORT INFORMATION
  Report Type: Spontaneous
  Country: US (occurrence: US)
  Receive Date: 20240116
  Receipt Date: 20240116
  Transmission Date: 20240410
  Serious: Yes (Other)
  Sender: FDA-Public Use
  Company Number: US-PFIZER INC-PV202400004801

PATIENT
  Age: 82 Year
  Sex: Female

DRUGS (2)
  1. XELJANZ [Suspect]
     Active Substance: TOFACITINIB CITRATE
     Indication: Rheumatoid arthritis
     Dosage: 5 MG, 2X/DAY
     Route: 048
     Dates: start: 2021
  2. IMATINIB MESYLATE [Concomitant]
     Active Substance: IMATINIB MESYLATE

REACTIONS (7)
  - Chronic myeloid leukaemia [Unknown]
  - Intestinal obstruction [Unknown]
  - Cataract [Unknown]
  - Neuropathy peripheral [Unknown]
  - Irritable bowel syndrome [Unknown]
  - Post-acute COVID-19 syndrome [Recovering/Resolving]
  - Ear disorder [Unknown]
